FAERS Safety Report 8325410-1 (Version None)
Quarter: 2012Q2

REPORT INFORMATION
  Report Type: 
  Country: None (occurrence: None)
  Receive Date: 20120501
  Receipt Date: 20110418
  Transmission Date: 20120825
  Serious: No
  Sender: FDA-Public Use
  Company Number: US-SANOFI-AVENTIS-2011SA023811

PATIENT
  Age: 54 Year
  Sex: Female

DRUGS (6)
  1. SOLOSTAR [Suspect]
     Dates: start: 20110301
  2. LANTUS [Suspect]
     Dosage: DOSE:30 UNIT(S)
     Route: 058
     Dates: start: 20110301
  3. APIDRA [Suspect]
     Dosage: DOSE:18 UNIT(S)
     Route: 058
     Dates: start: 20110301
  4. APIDRA [Suspect]
     Dosage: DOSE:18 UNIT(S)
     Route: 058
     Dates: start: 20100101, end: 20100301
  5. SOLOSTAR [Suspect]
     Dates: start: 20100101, end: 20100301
  6. SOLOSTAR [Suspect]
     Dates: start: 20110301

REACTIONS (3)
  - VISION BLURRED [None]
  - CONDITION AGGRAVATED [None]
  - WEIGHT INCREASED [None]
